FAERS Safety Report 5472799-7 (Version None)
Quarter: 2007Q4

REPORT INFORMATION
  Report Type: 
  Country: None (occurrence: None)
  Receive Date: 20071001
  Receipt Date: 20070510
  Transmission Date: 20080405
  Serious: No
  Sender: FDA-Public Use
  Company Number: US-ASTRAZENECA-2006UW24391

PATIENT
  Age: 71 Year
  Sex: Female
  Weight: 72.3 kg

DRUGS (6)
  1. ARIMIDEX [Suspect]
     Indication: BREAST CANCER FEMALE
     Route: 048
     Dates: start: 20060601, end: 20070501
  2. CRESTOR [Concomitant]
     Route: 048
  3. ASCORBIC ACID [Concomitant]
  4. VITAMIN B COMPLEX CAP [Concomitant]
  5. CENTRUM SILVER [Concomitant]
  6. ZETIA [Concomitant]

REACTIONS (3)
  - MYALGIA [None]
  - PAIN [None]
  - SKIN DISORDER [None]
